FAERS Safety Report 4689454-3 (Version None)
Quarter: 2005Q2

REPORT INFORMATION
  Report Type: 
  Country: None (occurrence: None)
  Receive Date: 20050311
  Receipt Date: 20050311
  Transmission Date: 20051028
  Serious: No
  Sender: FDA-Public Use
  Company Number: None

PATIENT
  Age: 47 Year
  Sex: Female
  Weight: 82.5547 kg

DRUGS (3)
  1. MS CONTIN [Suspect]
     Indication: FIBROMYALGIA
     Dosage: Q 4-6 HRS
  2. MS CONTIN [Suspect]
     Indication: INTERVERTEBRAL DISC DEGENERATION
     Dosage: Q 4-6 HRS
  3. MS CONTIN [Suspect]
     Indication: INTERVERTEBRAL DISC PROTRUSION
     Dosage: Q 4-6 HRS

REACTIONS (2)
  - INADEQUATE ANALGESIA [None]
  - PHARMACEUTICAL PRODUCT COMPLAINT [None]
